FAERS Safety Report 9067046 (Version 2)
Quarter: 2013Q1

REPORT INFORMATION
  Report Type: Spontaneous
  Country: US (occurrence: US)
  Receive Date: 20130214
  Receipt Date: 20130322
  Transmission Date: 20140127
  Serious: No
  Sender: FDA-Public Use
  Company Number: US-ROCHE-1189760

PATIENT
  Age: 5 None
  Sex: Female

DRUGS (1)
  1. TAMIFLU [Suspect]
     Indication: INFLUENZA
     Dosage: 6 MG/ML
     Route: 065
     Dates: start: 20130205

REACTIONS (2)
  - Pain in extremity [Unknown]
  - Product quality issue [Unknown]
